FAERS Safety Report 7320328-5 (Version None)
Quarter: 2011Q1

REPORT INFORMATION
  Report Type: 
  Country: None (occurrence: None)
  Receive Date: 20110228
  Receipt Date: 20110216
  Transmission Date: 20110831
  Serious: Yes (Other)
  Sender: FDA-Public Use
  Company Number: GB-WATSON-2011-02192

PATIENT
  Sex: Female

DRUGS (2)
  1. CORTICOSTEROIDS [Concomitant]
     Indication: PRODUCT USED FOR UNKNOWN INDICATION
  2. ALENDRONATE SODIUM [Suspect]
     Indication: POLYMYALGIA RHEUMATICA
     Dosage: 70 MG, 1/WEEK
     Route: 065

REACTIONS (5)
  - CHEST DISCOMFORT [None]
  - PALPITATIONS [None]
  - DYSPNOEA [None]
  - DIZZINESS [None]
  - BACK PAIN [None]
